FAERS Safety Report 22640280 (Version 1)
Quarter: 2023Q2

REPORT INFORMATION
  Report Type: Spontaneous
  Country: NL (occurrence: NL)
  Receive Date: 20230626
  Receipt Date: 20230626
  Transmission Date: 20230722
  Serious: Yes (Other)
  Sender: FDA-Public Use
  Company Number: None

PATIENT
  Sex: Female
  Weight: 85 kg

DRUGS (2)
  1. DOXYCYCLINE [Suspect]
     Active Substance: DOXYCYCLINE
     Indication: Ear infection
     Dosage: 100 MILLIGRAM DAILY;  THEN 1 TIME PER DAY, DOXYCYCLINE DISPERTABLET 100MG / BRAND NAME NOT SPECIFIED
     Route: 065
     Dates: start: 20230513
  2. DOXYCYCLINE [Suspect]
     Active Substance: DOXYCYCLINE
     Indication: Pneumonia
     Dosage: 200 MILLIGRAM DAILY; FIRST DAY 2,
     Route: 065
     Dates: start: 20230512, end: 20230512

REACTIONS (1)
  - Sacroiliitis [Not Recovered/Not Resolved]
